FAERS Safety Report 4320133-8 (Version None)
Quarter: 2004Q1

REPORT INFORMATION
  Report Type: 
  Country: None (occurrence: None)
  Receive Date: 20040317
  Receipt Date: 20040304
  Transmission Date: 20041129
  Serious: Yes (Death, Hospitalization)
  Sender: FDA-Public Use
  Company Number: 23240 (0)

PATIENT
  Age: 82 Year
  Sex: Female

DRUGS (5)
  1. TAMBOCOR [Suspect]
     Indication: ATRIAL FIBRILLATION
     Dosage: 200 MG (100 MG, 2 IN 1 DAY(S)), ORAL
     Route: 048
     Dates: start: 20030301, end: 20030901
  2. ISOTEN [Concomitant]
  3. HYDERGINE [Concomitant]
  4. IHIBACE [Concomitant]
  5. BURINEX [Concomitant]

REACTIONS (3)
  - CARDIAC ARREST [None]
  - COMA [None]
  - PACING THRESHOLD INCREASED [None]
